FAERS Safety Report 4819422-X (Version None)
Quarter: 2005Q4

REPORT INFORMATION
  Report Type: 
  Country: None (occurrence: None)
  Receive Date: 20051103
  Receipt Date: 20051024
  Transmission Date: 20060501
  Serious: Yes (Other)
  Sender: FDA-Public Use
  Company Number: FR-JNJFOC-20050905870

PATIENT
  Sex: Female
  Weight: 55 kg

DRUGS (3)
  1. RISPERDAL [Suspect]
     Route: 048
     Dates: start: 20040101, end: 20050901
  2. STILNOX [Concomitant]
     Indication: INSOMNIA
     Dosage: 1 DOSE = 1 TABLET
  3. LEPTICUR [Concomitant]
     Indication: DYSKINESIA

REACTIONS (3)
  - AMENORRHOEA [None]
  - HYPERPROLACTINAEMIA [None]
  - PITUITARY TUMOUR BENIGN [None]
